FAERS Safety Report 13184070 (Version 1)
Quarter: 2017Q1

REPORT INFORMATION
  Report Type: Spontaneous
  Country: US (occurrence: US)
  Receive Date: 20170203
  Receipt Date: 20170203
  Transmission Date: 20170428
  Serious: No
  Sender: FDA-Public Use
  Company Number: US-BAYER-2017-020994

PATIENT
  Sex: Female

DRUGS (3)
  1. MIRALAX [Suspect]
     Active Substance: POLYETHYLENE GLYCOL 3350
     Indication: GASTROINTESTINAL DISORDER
     Route: 065
  2. BENEFIBER [Concomitant]
     Active Substance: STARCH, WHEAT
  3. MINERAL OIL EMULSION [Concomitant]
     Active Substance: MINERAL OIL EMULSION

REACTIONS (1)
  - Abdominal pain upper [Unknown]
